FAERS Safety Report 24402534 (Version 1)
Quarter: 2024Q4

REPORT INFORMATION
  Report Type: Spontaneous
  Country: US (occurrence: US)
  Receive Date: 20241007
  Receipt Date: 20241007
  Transmission Date: 20250114
  Serious: Yes (Hospitalization, Other)
  Sender: SPECGX
  Company Number: US-SPECGX-T202401977

PATIENT
  Age: 34 Year
  Sex: Female

DRUGS (5)
  1. OXYCODONE [Suspect]
     Active Substance: OXYCODONE
     Indication: Bone pain
     Dosage: UNK
     Route: 065
  2. ENOXAPARIN [Suspect]
     Active Substance: ENOXAPARIN
     Indication: Deep vein thrombosis
     Dosage: UNK
     Route: 065
  3. ENOXAPARIN [Suspect]
     Active Substance: ENOXAPARIN
     Indication: Pulmonary embolism
  4. DILAUDID [Suspect]
     Active Substance: HYDROMORPHONE HYDROCHLORIDE
     Indication: Bone pain
     Dosage: UNK
     Route: 065
  5. TORADOL [Suspect]
     Active Substance: KETOROLAC TROMETHAMINE
     Indication: Bone pain
     Dosage: UNK
     Route: 065

REACTIONS (13)
  - Acute chest syndrome [Recovering/Resolving]
  - Retroperitoneal haematoma [Recovering/Resolving]
  - Extravasation [Recovering/Resolving]
  - Enterococcal infection [Recovering/Resolving]
  - Pseudomonas infection [Recovering/Resolving]
  - Enterobacter infection [Recovering/Resolving]
  - Candida infection [Recovering/Resolving]
  - Delayed haemolytic transfusion reaction [Recovering/Resolving]
  - Radioembolisation [Unknown]
  - Caesarean section [Unknown]
  - Drain placement [Unknown]
  - Pyrexia [Recovering/Resolving]
  - Exposure during pregnancy [Unknown]
